FAERS Safety Report 13100936 (Version 2)
Quarter: 2017Q1

REPORT INFORMATION
  Report Type: Report from Study
  Country: US (occurrence: US)
  Receive Date: 20170110
  Receipt Date: 20170206
  Transmission Date: 20170428
  Serious: Yes (Other)
  Sender: FDA-Public Use
  Company Number: US-PFIZER INC-2017007739

PATIENT
  Age: 64 Year
  Sex: Female

DRUGS (1)
  1. IBRANCE [Suspect]
     Active Substance: PALBOCICLIB
     Indication: BREAST CANCER
     Dosage: 100 MG, CYCLIC (DAILY 3 WEEKS ON/1 WEEK OFF)
     Route: 048
     Dates: start: 20160908

REACTIONS (4)
  - Arthralgia [Unknown]
  - Bone marrow failure [Recovered/Resolved]
  - Drug dose omission [Unknown]
  - Musculoskeletal pain [Unknown]
